FAERS Safety Report 7348468-5 (Version None)
Quarter: 2011Q1

REPORT INFORMATION
  Report Type: 
  Country: None (occurrence: None)
  Receive Date: 20110314
  Receipt Date: 20110304
  Transmission Date: 20110831
  Serious: Yes (Other)
  Sender: FDA-Public Use
  Company Number: US-ASTRAZENECA-2011SE12082

PATIENT
  Sex: Female

DRUGS (5)
  1. CHOLESTEROL MEDICATION [Concomitant]
  2. MULTIVITAMIN [Concomitant]
  3. SYMBICORT [Suspect]
     Dosage: 160/4.5 UG ONE PUFF TWICE A DAY
     Route: 055
  4. SYMBICORT [Suspect]
     Indication: EMPHYSEMA
     Dosage: 160/4.5 UG TWO PUFFS TWICE A DAY
     Route: 055
  5. THYROID MEDICATION [Concomitant]

REACTIONS (5)
  - DYSPNOEA [None]
  - LOSS OF CONSCIOUSNESS [None]
  - OXYGEN SATURATION DECREASED [None]
  - DRUG DOSE OMISSION [None]
  - DIZZINESS [None]
